FAERS Safety Report 20426553 (Version 1)
Quarter: 2022Q1

REPORT INFORMATION
  Report Type: Report from Study
  Country: US (occurrence: US)
  Receive Date: 20220204
  Receipt Date: 20220204
  Transmission Date: 20220423
  Serious: No
  Sender: FDA-Public Use
  Company Number: US-EXELIXIS-CABO-21045351

PATIENT
  Age: 61 Year
  Sex: Male

DRUGS (29)
  1. CABOMETYX [Suspect]
     Active Substance: CABOZANTINIB S-MALATE
     Indication: Metastases to liver
     Dosage: 40 MG, QD
     Dates: start: 20210820
  2. CABOMETYX [Suspect]
     Active Substance: CABOZANTINIB S-MALATE
     Indication: Metastasis
     Dosage: 20 MG, QD (1/2 TAB OF 40 MG, QD)
     Dates: start: 20211103
  3. CABOMETYX [Suspect]
     Active Substance: CABOZANTINIB S-MALATE
     Indication: Malignant splenic neoplasm
  4. OPDIVO [Suspect]
     Active Substance: NIVOLUMAB
     Indication: Malignant splenic neoplasm
     Dosage: UNK, Q4WEEKS
     Route: 042
  5. SCOPOLAMINE [Concomitant]
     Active Substance: SCOPOLAMINE
     Dosage: UNK
  6. PROCHLORPERAZINE [Concomitant]
     Active Substance: PROCHLORPERAZINE
     Dosage: UNK
  7. OXYCODONE [Concomitant]
     Active Substance: OXYCODONE
     Dosage: UNK
  8. IMODIUM AD [Concomitant]
     Active Substance: LOPERAMIDE HYDROCHLORIDE
     Dosage: UNK
  9. VIMPAT [Concomitant]
     Active Substance: LACOSAMIDE
     Dosage: UNK
  10. XOPENEX [Concomitant]
     Active Substance: LEVALBUTEROL HYDROCHLORIDE
     Dosage: UNK
  11. TAMSULOSIN [Concomitant]
     Active Substance: TAMSULOSIN
     Dosage: UNK
  12. FINASTERIDE [Concomitant]
     Active Substance: FINASTERIDE
     Dosage: UNK
  13. FLECAINIDE ACETATE [Concomitant]
     Active Substance: FLECAINIDE ACETATE
     Dosage: UNK
  14. MINERALS\VITAMINS [Concomitant]
     Active Substance: MINERALS\VITAMINS
     Dosage: UNK
  15. XGEVA [Concomitant]
     Active Substance: DENOSUMAB
     Dosage: UNK
  16. LORATADINE [Concomitant]
     Active Substance: LORATADINE
     Dosage: UNK
  17. ONDANSETRON HCL [Concomitant]
     Active Substance: ONDANSETRON HYDROCHLORIDE
     Dosage: UNK
  18. CALCIUM GLUCONATE [Concomitant]
     Active Substance: CALCIUM GLUCONATE
     Dosage: UNK
  19. OMEPRAZOLE [Concomitant]
     Active Substance: OMEPRAZOLE
     Dosage: UNK
  20. SUCRALFATE [Concomitant]
     Active Substance: SUCRALFATE
     Dosage: UNK
  21. MUCINEX [Concomitant]
     Active Substance: GUAIFENESIN
     Dosage: UNK
  22. ASPIRIN [Concomitant]
     Active Substance: ASPIRIN
     Dosage: UNK
  23. GABAPENTIN [Concomitant]
     Active Substance: GABAPENTIN
     Dosage: UNK
  24. PROPRANOLOL [Concomitant]
     Active Substance: PROPRANOLOL HYDROCHLORIDE
     Dosage: UNK
  25. MELATONIN [Concomitant]
     Active Substance: MELATONIN
     Dosage: UNK
  26. VITAMIN D NOS [Concomitant]
     Active Substance: VITAMIN D NOS
  27. FLEXERIL [Concomitant]
     Active Substance: CYCLOBENZAPRINE HYDROCHLORIDE
  28. SKELAXIN [Concomitant]
     Active Substance: METAXALONE
  29. MELOXICAM [Concomitant]
     Active Substance: MELOXICAM

REACTIONS (15)
  - Back pain [Recovering/Resolving]
  - Rash macular [Unknown]
  - Mouth ulceration [Recovered/Resolved]
  - Taste disorder [Not Recovered/Not Resolved]
  - Vomiting [Recovered/Resolved]
  - Diarrhoea [Not Recovered/Not Resolved]
  - Nausea [Not Recovered/Not Resolved]
  - Dry skin [Recovering/Resolving]
  - Decreased appetite [Recovering/Resolving]
  - Fatigue [Unknown]
  - Blood pressure increased [Recovered/Resolved]
  - Dehydration [Unknown]
  - Wrong technique in product usage process [Unknown]
  - Product prescribing error [Unknown]
  - Off label use [Unknown]

NARRATIVE: CASE EVENT DATE: 20211103
